FAERS Safety Report 9675762 (Version 2)
Quarter: 2013Q4

REPORT INFORMATION
  Report Type: Spontaneous
  Country: US (occurrence: US)
  Receive Date: 20131107
  Receipt Date: 20131111
  Transmission Date: 20140711
  Serious: Yes (Other)
  Sender: FDA-Public Use
  Company Number: US-PFIZER INC-2013316402

PATIENT
  Age: 70 Year
  Sex: Female
  Weight: 58.96 kg

DRUGS (22)
  1. XELJANZ [Suspect]
     Indication: RHEUMATOID ARTHRITIS
     Dosage: 5 MG, 2X/DAY
     Route: 048
     Dates: start: 20130801
  2. ACETAMINOPHEN [Concomitant]
     Dosage: UNK
  3. OXYCODONE [Concomitant]
     Dosage: UNK
  4. MUPIROCIN [Concomitant]
     Dosage: UNK
  5. BONIVA [Concomitant]
     Dosage: UNK
  6. PREDNISONE [Concomitant]
     Dosage: UNK
  7. FUROSEMIDE [Concomitant]
     Dosage: UNK
  8. VOLTAREN [Concomitant]
     Dosage: UNK
  9. POTASSIUM [Concomitant]
     Dosage: UNK
  10. ARAVA [Concomitant]
     Dosage: UNK
  11. GABAPENTIN [Concomitant]
     Dosage: UNK
  12. FOLIC ACID [Concomitant]
     Dosage: UNK
  13. FAMOTIDINE [Concomitant]
     Dosage: UNK
  14. FERROUS SULPHATE [Concomitant]
     Dosage: UNK
  15. LEVOTHYROXINE [Concomitant]
     Dosage: UNK
  16. TRIAMTERENE-HCTZ [Concomitant]
     Dosage: UNK
  17. WARFARIN SODIUM [Concomitant]
     Dosage: UNK
  18. TRETINOIN [Concomitant]
     Dosage: UNK
  19. VITAMIN C [Concomitant]
     Dosage: UNK
  20. LUNESTA [Concomitant]
     Dosage: UNK
  21. FLUOROMETHOLONE [Concomitant]
     Dosage: UNK
  22. VITAMIN D [Concomitant]
     Dosage: UNK

REACTIONS (16)
  - Loss of consciousness [Not Recovered/Not Resolved]
  - Blindness [Not Recovered/Not Resolved]
  - Drug ineffective [Not Recovered/Not Resolved]
  - Swelling [Not Recovered/Not Resolved]
  - Synovitis [Not Recovered/Not Resolved]
  - Local swelling [Not Recovered/Not Resolved]
  - Limb injury [Not Recovered/Not Resolved]
  - Arthralgia [Not Recovered/Not Resolved]
  - Dizziness [Not Recovered/Not Resolved]
  - Head discomfort [Not Recovered/Not Resolved]
  - Influenza [Not Recovered/Not Resolved]
  - Thinking abnormal [Not Recovered/Not Resolved]
  - Fall [Not Recovered/Not Resolved]
  - Tremor [Not Recovered/Not Resolved]
  - Swelling face [Not Recovered/Not Resolved]
  - Fatigue [Not Recovered/Not Resolved]
